FAERS Safety Report 17504727 (Version 1)
Quarter: 2020Q1

REPORT INFORMATION
  Report Type: Spontaneous
  Country: US (occurrence: US)
  Receive Date: 20200305
  Receipt Date: 20200305
  Transmission Date: 20200409
  Serious: Yes (Other)
  Sender: FDA-Public Use
  Company Number: US-BAYER-2020-012686

PATIENT
  Age: 70 Year
  Sex: Female

DRUGS (2)
  1. AFRIN ORIGINAL [Suspect]
     Active Substance: OXYMETAZOLINE HYDROCHLORIDE
     Indication: NASOPHARYNGITIS
  2. AFRIN ORIGINAL [Suspect]
     Active Substance: OXYMETAZOLINE HYDROCHLORIDE
     Indication: ALLERGIC RESPIRATORY SYMPTOM
     Dosage: UNK
     Route: 055

REACTIONS (6)
  - Product package associated injury [Recovering/Resolving]
  - Musculoskeletal disorder [None]
  - Muscle injury [Unknown]
  - Hypoaesthesia [Unknown]
  - Peripheral nerve injury [Unknown]
  - Ligament injury [Unknown]

NARRATIVE: CASE EVENT DATE: 2020
